FAERS Safety Report 16926990 (Version 2)
Quarter: 2019Q4

REPORT INFORMATION
  Report Type: Spontaneous
  Country: PL (occurrence: PL)
  Receive Date: 20191016
  Receipt Date: 20191213
  Transmission Date: 20200122
  Serious: Yes (Death, Hospitalization)
  Sender: FDA-Public Use
  Company Number: PL-ABBVIE-19K-129-2966901-00

PATIENT
  Age: 68 Year
  Sex: Female

DRUGS (2)
  1. VENCLYXTO [Suspect]
     Active Substance: VENETOCLAX
     Indication: CHRONIC LYMPHOCYTIC LEUKAEMIA
     Dosage: DURATION 1 DAYS
     Route: 048
     Dates: start: 20191001
  2. VENCLYXTO [Suspect]
     Active Substance: VENETOCLAX
     Dosage: START DATE FROM 2ND DAY OF TREATMENT
     Route: 048

REACTIONS (5)
  - Hyperuricaemia [Unknown]
  - General physical health deterioration [Fatal]
  - Bacterial infection [Unknown]
  - Asthenia [Unknown]
  - Altered state of consciousness [Unknown]

NARRATIVE: CASE EVENT DATE: 2019
